FAERS Safety Report 14269740 (Version 3)
Quarter: 2018Q4

REPORT INFORMATION
  Report Type: Spontaneous
  Country: US (occurrence: US)
  Receive Date: 20171211
  Receipt Date: 20181210
  Transmission Date: 20190204
  Serious: Yes (Hospitalization, Other)
  Sender: FDA-Public Use
  Company Number: US-OTSUKA-2017_002485

PATIENT
  Age: 51 Year
  Sex: Female

DRUGS (14)
  1. ABILIFY [Suspect]
     Active Substance: ARIPIPRAZOLE
     Indication: ADJUVANT THERAPY
     Dosage: 15 MG, QD
     Route: 065
     Dates: end: 201601
  2. BACLOFEN. [Concomitant]
     Active Substance: BACLOFEN
     Indication: PRODUCT USED FOR UNKNOWN INDICATION
     Dosage: 20 MG, QID
     Route: 048
  3. LYRICA [Concomitant]
     Active Substance: PREGABALIN
     Indication: PRODUCT USED FOR UNKNOWN INDICATION
     Dosage: 100 MG, TID
     Route: 048
  4. METHADONE HCL [Concomitant]
     Active Substance: METHADONE HYDROCHLORIDE
     Indication: PRODUCT USED FOR UNKNOWN INDICATION
     Dosage: 10 MG, TID
     Route: 065
  5. ABILIFY [Suspect]
     Active Substance: ARIPIPRAZOLE
     Indication: MAJOR DEPRESSION
     Dosage: 5 MG, QD
     Route: 065
     Dates: start: 200905
  6. ZOLPIDEM TARTRATE. [Concomitant]
     Active Substance: ZOLPIDEM TARTRATE
     Indication: PRODUCT USED FOR UNKNOWN INDICATION
     Dosage: 10 MG, QD (AT BED TIME)
     Route: 048
  7. OLANZAPINE. [Concomitant]
     Active Substance: OLANZAPINE
     Indication: PRODUCT USED FOR UNKNOWN INDICATION
     Dosage: 15 MG, QD
     Route: 048
  8. ZITHROMAX [Concomitant]
     Active Substance: AZITHROMYCIN DIHYDRATE
     Indication: PRODUCT USED FOR UNKNOWN INDICATION
     Dosage: 250 MG, BID
     Route: 048
  9. ATORVASTATIN CALCIUM. [Concomitant]
     Active Substance: ATORVASTATIN CALCIUM
     Indication: PRODUCT USED FOR UNKNOWN INDICATION
     Dosage: 10 MG, UNK
     Route: 065
  10. HYDROCODONE/ACETAMINOPHEN [Concomitant]
     Active Substance: ACETAMINOPHEN\HYDROCODONE
     Indication: PRODUCT USED FOR UNKNOWN INDICATION
     Dosage: 10MG/325MG, Q4 TO 6HR PRN
     Route: 048
  11. CYMBALTA [Concomitant]
     Active Substance: DULOXETINE HYDROCHLORIDE
     Indication: PRODUCT USED FOR UNKNOWN INDICATION
     Dosage: 60 MG, BID
     Route: 065
  12. ALPRAZOLAM. [Concomitant]
     Active Substance: ALPRAZOLAM
     Indication: PRODUCT USED FOR UNKNOWN INDICATION
     Dosage: 0.5 MG, BID
     Route: 048
  13. ARIPIPRAZOLE. [Concomitant]
     Active Substance: ARIPIPRAZOLE
     Indication: PRODUCT USED FOR UNKNOWN INDICATION
     Dosage: UNK
     Route: 065
     Dates: start: 20150609, end: 201601
  14. IBUPROFEN. [Concomitant]
     Active Substance: IBUPROFEN
     Indication: PRODUCT USED FOR UNKNOWN INDICATION
     Dosage: 800 MG, TID PRN
     Route: 065

REACTIONS (33)
  - Hospitalisation [Unknown]
  - Suicide attempt [Recovered/Resolved]
  - Injury [Unknown]
  - Mental disorder [Unknown]
  - Acne cystic [Unknown]
  - Pain [Unknown]
  - Condition aggravated [Recovered/Resolved]
  - Malaise [Unknown]
  - Gambling disorder [Recovered/Resolved]
  - Haematochezia [Unknown]
  - Vitamin D deficiency [Unknown]
  - Joint swelling [Unknown]
  - Back pain [Unknown]
  - Palpitations [Unknown]
  - Urinary retention [Unknown]
  - Encephalopathy [Unknown]
  - Suicidal ideation [Recovered/Resolved]
  - Varicose vein [Unknown]
  - Emotional distress [Unknown]
  - Flank pain [Unknown]
  - Urinary tract infection [Unknown]
  - Abdominal pain [Unknown]
  - Obsessive-compulsive disorder [Unknown]
  - Neuropathy peripheral [Unknown]
  - Compulsive shopping [Recovered/Resolved]
  - Tachycardia [Unknown]
  - Anxiety [Unknown]
  - Familial tremor [Unknown]
  - Muscle strain [Unknown]
  - Anaemia [Unknown]
  - Arthralgia [Unknown]
  - Hypercholesterolaemia [Unknown]
  - Economic problem [Unknown]

NARRATIVE: CASE EVENT DATE: 200907
